FAERS Safety Report 6501810-7 (Version None)
Quarter: 2009Q4

REPORT INFORMATION
  Report Type: 
  Country: None (occurrence: None)
  Receive Date: 20091216
  Receipt Date: 20090518
  Transmission Date: 20100525
  Serious: Yes (Hospitalization)
  Sender: FDA-Public Use
  Company Number: US-AMGEN-QUU347460

PATIENT
  Sex: Male

DRUGS (18)
  1. ARANESP [Suspect]
     Indication: ANAEMIA
     Dates: start: 20060101, end: 20080101
  2. PLAVIX [Concomitant]
  3. NIASPAN [Concomitant]
  4. ISOSORBIDE [Concomitant]
  5. FELODIPINE [Concomitant]
  6. FOLIC ACID [Concomitant]
  7. FINASTERIDE [Concomitant]
  8. UNSPECIFIED MEDICATION [Concomitant]
  9. TOPROL-XL [Concomitant]
  10. ZOCOR [Concomitant]
  11. ZETIA [Concomitant]
  12. BONIVA [Concomitant]
  13. RANITIDINE [Concomitant]
  14. NITROGLYCERIN [Concomitant]
  15. MULTI-VITAMINS [Concomitant]
  16. CALCIUM [Concomitant]
  17. FISH OIL [Concomitant]
  18. COENZYME Q10 [Concomitant]

REACTIONS (1)
  - MYOCARDIAL INFARCTION [None]
